FAERS Safety Report 6188650-6 (Version None)
Quarter: 2009Q2

REPORT INFORMATION
  Report Type: 
  Country: None (occurrence: None)
  Receive Date: 20090511
  Receipt Date: 20090511
  Transmission Date: 20091009
  Serious: Yes (Hospitalization)
  Sender: FDA-Public Use
  Company Number: None

PATIENT
  Age: 49 Year
  Sex: Female
  Weight: 78.8805 kg

DRUGS (16)
  1. DOCETAXEL [Suspect]
     Indication: NON-SMALL CELL LUNG CANCER
     Dosage: 75 MG/M2, ONCE Q3WKS, IV
     Route: 042
     Dates: start: 20090408
  2. CISPLATIN [Suspect]
     Indication: NON-SMALL CELL LUNG CANCER
     Dosage: 75 MG/M2, ONCE Q3WKS, IV
     Route: 042
     Dates: start: 20090408
  3. CALCITRIOL [Concomitant]
  4. AZATHIOPRINE [Concomitant]
  5. COMPAZINE [Concomitant]
  6. DIFLUNISAL [Concomitant]
  7. HYDROXYCHLOROQUINE SULFATE [Concomitant]
  8. IMITREX [Concomitant]
  9. DECADRON [Concomitant]
  10. VICODIN [Concomitant]
  11. ZOFRAN [Concomitant]
  12. ACETAMINOPHEN [Concomitant]
  13. WARFARIN SODIUM [Concomitant]
  14. EMEND [Concomitant]
  15. EMLA [Concomitant]
  16. FLONASE [Concomitant]

REACTIONS (1)
  - FEBRILE NEUTROPENIA [None]
